FAERS Safety Report 8769715 (Version 2)
Quarter: 2012Q4

REPORT INFORMATION
  Report Type: 
  Country: US (occurrence: US)
  Receive Date: 20120905
  Receipt Date: 20121001
  Transmission Date: 20130627
  Serious: No
  Sender: FDA-Public Use
  Company Number: US-009507513-1208USA009075

PATIENT
  Age: 67 Year
  Sex: Female
  Weight: 79.37 kg

DRUGS (15)
  1. MIRALAX [Suspect]
     Indication: CONSTIPATION
     Dosage: 34 g, qd
     Route: 048
     Dates: start: 20120802, end: 20120806
  2. MIRALAX [Suspect]
     Indication: MEDICAL OBSERVATION
     Dosage: 17 g, qd
     Route: 048
     Dates: start: 20120807, end: 20120807
  3. AMITRIPTYLINE HYDROCHLORIDE [Concomitant]
     Indication: SLEEP DISORDER THERAPY
     Dosage: UNK, Unknown
  4. LORAZEPAM [Concomitant]
     Indication: SLEEP DISORDER THERAPY
     Dosage: 1 mg, Unknown
  5. CARISOPRODOL [Concomitant]
     Indication: BACK PAIN
     Dosage: 350 mg, Unknown
  6. CLONIDINE [Concomitant]
     Indication: NEUROPATHY PERIPHERAL
     Dosage: 0.3 mg, Unknown
  7. GABAPENTIN [Concomitant]
     Indication: NEUROPATHY PERIPHERAL
     Dosage: 400 mg, Unknown
  8. LYRICA [Concomitant]
     Indication: NEUROPATHY PERIPHERAL
     Dosage: 150 mg, Unknown
  9. MORPHINE SULFATE [Concomitant]
     Indication: NEUROPATHY PERIPHERAL
     Dosage: 15 mg, Unknown
  10. TRAMADOL HYDROCHLORIDE [Concomitant]
     Indication: NEUROPATHY PERIPHERAL
     Dosage: 50 mg, Unknown
  11. TRIMETHOPRIM [Concomitant]
     Indication: CYSTITIS
     Dosage: 100 mg, Unknown
  12. LISINOPRIL [Concomitant]
     Indication: BLOOD PRESSURE ABNORMAL
     Dosage: 20 mg, Unknown
  13. PRAVASTATIN SODIUM [Concomitant]
     Indication: BLOOD CHOLESTEROL ABNORMAL
     Dosage: 20 mg, Unknown
  14. PREMPRO [Concomitant]
     Indication: HOT FLUSH
     Dosage: UNK, Unknown
  15. METANX [Concomitant]
     Indication: NEUROPATHY PERIPHERAL
     Dosage: UNK, Unknown

REACTIONS (3)
  - Faecal incontinence [Recovered/Resolved]
  - Overdose [Unknown]
  - Inappropriate schedule of drug administration [Unknown]
